FAERS Safety Report 22179196 (Version 2)
Quarter: 2024Q1

REPORT INFORMATION
  Report Type: Spontaneous
  Country: FR (occurrence: FR)
  Receive Date: 20230406
  Receipt Date: 20240109
  Transmission Date: 20240410
  Serious: Yes (Other)
  Sender: FDA-Public Use
  Company Number: FR-AFSSAPS-TO2023000480

PATIENT

DRUGS (3)
  1. VALGANCICLOVIR [Suspect]
     Active Substance: VALGANCICLOVIR
     Indication: Transplant
     Dosage: 1/JR
     Route: 048
     Dates: start: 20230105
  2. ENVARSUS XR [Suspect]
     Active Substance: TACROLIMUS
     Indication: Antiviral prophylaxis
     Dosage: 3MG/JR
     Route: 048
     Dates: start: 20230105
  3. MYFORTIC [Suspect]
     Active Substance: MYCOPHENOLATE SODIUM
     Indication: Transplant
     Dosage: NR
     Route: 048
     Dates: start: 20230105

REACTIONS (1)
  - Alopecia [Not Recovered/Not Resolved]

NARRATIVE: CASE EVENT DATE: 20230207
